FAERS Safety Report 6444105-2 (Version None)
Quarter: 2009Q4

REPORT INFORMATION
  Report Type: 
  Country: None (occurrence: None)
  Receive Date: 20091118
  Receipt Date: 20091105
  Transmission Date: 20100525
  Serious: Yes (Hospitalization)
  Sender: FDA-Public Use
  Company Number: US-ELI_LILLY_AND_COMPANY-US200911001411

PATIENT
  Sex: Female
  Weight: 49.9 kg

DRUGS (3)
  1. GEMCITABINE HCL [Suspect]
     Indication: BLADDER CANCER
     Dosage: 1160 MG, WEEKLY (1/W)
     Route: 042
     Dates: start: 20090706, end: 20090816
  2. SUNITINIB MALATE [Suspect]
     Indication: BLADDER CANCER
     Dosage: 37.5 MG, DAILY (1/D)
     Route: 065
     Dates: start: 20090706, end: 20090719
  3. CISPLATIN [Suspect]
     Indication: BLADDER CANCER
     Dosage: 87 MG, OTHER
     Route: 042
     Dates: start: 20090706, end: 20090816

REACTIONS (4)
  - HYDRONEPHROSIS [None]
  - MYOCARDIAL INFARCTION [None]
  - SEPSIS [None]
  - URINARY TRACT INFECTION [None]
